FAERS Safety Report 6768177-0 (Version None)
Quarter: 2010Q2

REPORT INFORMATION
  Report Type: 
  Country: None (occurrence: None)
  Receive Date: 20100614
  Receipt Date: 20100604
  Transmission Date: 20101027
  Serious: Yes (Hospitalization)
  Sender: FDA-Public Use
  Company Number: IT-BAYER-201018153GPV

PATIENT
  Age: 64 Year
  Sex: Male
  Weight: 90 kg

DRUGS (5)
  1. SORAFENIB [Suspect]
     Indication: NON-SMALL CELL LUNG CANCER
     Dosage: TOTAL DAILY DOSE: 800 MG
     Route: 048
     Dates: start: 20100216, end: 20100302
  2. OMNIC [Concomitant]
     Indication: BENIGN PROSTATIC HYPERPLASIA
     Dates: start: 20060901
  3. DEDRALEN [Concomitant]
     Indication: HYPERTENSION
     Dates: start: 19930101
  4. DELTACORTENE [Concomitant]
     Dates: start: 20100216, end: 20100316
  5. ALIFLUS [Concomitant]
     Dosage: AS USED: 200/1000 ?G
     Dates: start: 20100216, end: 20100316

REACTIONS (2)
  - DYSPNOEA [None]
  - PNEUMOTHORAX [None]
